FAERS Safety Report 13129712 (Version 3)
Quarter: 2017Q1

REPORT INFORMATION
  Report Type: Spontaneous
  Country: US (occurrence: US)
  Receive Date: 20170119
  Receipt Date: 20170131
  Transmission Date: 20170428
  Serious: No
  Sender: FDA-Public Use
  Company Number: US-PFIZER INC-2017019942

PATIENT
  Weight: 49.9 kg

DRUGS (3)
  1. XANAX [Suspect]
     Active Substance: ALPRAZOLAM
     Dosage: 0.25 MG, UNK
  2. PROTONIX [Suspect]
     Active Substance: PANTOPRAZOLE SODIUM
     Indication: GASTROOESOPHAGEAL REFLUX DISEASE
     Dosage: 40 MG, 1X/DAY
  3. PEPCID [Suspect]
     Active Substance: FAMOTIDINE
     Dosage: 20 MG, UNK

REACTIONS (6)
  - Burning sensation [Unknown]
  - Throat irritation [Unknown]
  - Lacrimation increased [Unknown]
  - Lip dry [Unknown]
  - Malaise [Unknown]
  - Dose calculation error [Unknown]
